FAERS Safety Report 6329666-6 (Version None)
Quarter: 2009Q3

REPORT INFORMATION
  Report Type: 
  Country: None (occurrence: None)
  Receive Date: 20090824
  Receipt Date: 20090501
  Transmission Date: 20100115
  Serious: Yes (Hospitalization)
  Sender: FDA-Public Use
  Company Number: 2009-GWUS-0307

PATIENT
  Age: 87 Year
  Sex: Male

DRUGS (10)
  1. FLECAINIDE ACETATE [Suspect]
     Indication: ATRIAL FIBRILLATION
     Dosage: 50MG - BID - ORAL
     Route: 048
     Dates: start: 20051201
  2. FLECAINIDE ACETATE [Suspect]
     Indication: ATRIAL FIBRILLATION
     Dosage: 100MG - BID - ORAL;
     Route: 048
     Dates: end: 20071001
  3. METOPROLOL TARTRATE [Concomitant]
  4. COUMADIN [Concomitant]
  5. DIGOXIN [Concomitant]
  6. OLMESARTAN/HYDROCHLOROTHIAZIDE [Concomitant]
  7. POTASSIUM CHLORIDE [Concomitant]
  8. TORSEMIDE [Concomitant]
  9. HYDROCHLOROTHIAZIDE [Concomitant]
  10. FLECAINIDE ACETATE [Suspect]
     Indication: ATRIAL FIBRILLATION
     Dosage: 125MG   BID ORAL
     Route: 048

REACTIONS (14)
  - BALANCE DISORDER [None]
  - CARDIAC FAILURE [None]
  - CARDIAC MURMUR [None]
  - DRUG TOXICITY [None]
  - EJECTION FRACTION DECREASED [None]
  - HYPOTENSION [None]
  - LISTLESS [None]
  - MITRAL VALVE INCOMPETENCE [None]
  - MUSCULAR WEAKNESS [None]
  - OEDEMA [None]
  - POLLAKIURIA [None]
  - RALES [None]
  - SICK SINUS SYNDROME [None]
  - SYNCOPE [None]
